FAERS Safety Report 13139204 (Version 2)
Quarter: 2017Q1

REPORT INFORMATION
  Report Type: Report from Study
  Country: SE (occurrence: SE)
  Receive Date: 20170123
  Receipt Date: 20170213
  Transmission Date: 20170428
  Serious: Yes (Hospitalization)
  Sender: FDA-Public Use
  Company Number: SE-ASTELLAS-2017US002139

PATIENT
  Age: 73 Year
  Sex: Male

DRUGS (1)
  1. ENZALUTAMIDE [Suspect]
     Active Substance: ENZALUTAMIDE
     Indication: PROSTATE CANCER
     Route: 048
     Dates: start: 20150521

REACTIONS (1)
  - Aphasia [Recovered/Resolved]

NARRATIVE: CASE EVENT DATE: 20170112
